FAERS Safety Report 5706011-8 (Version None)
Quarter: 2008Q2

REPORT INFORMATION
  Report Type: 
  Country: None (occurrence: None)
  Receive Date: 20080415
  Receipt Date: 20080404
  Transmission Date: 20081010
  Serious: Yes (Other)
  Sender: FDA-Public Use
  Company Number: PHHY2008IT04746

PATIENT
  Age: 76 Year
  Sex: Male

DRUGS (7)
  1. NITRODERM [Suspect]
     Indication: HYPERTENSIVE CARDIOMYOPATHY
     Dosage: 10 MG/DAY
     Route: 062
     Dates: start: 20080329, end: 20080330
  2. CONGESCOR [Concomitant]
     Dosage: 2.5 MG, UNK
     Route: 048
  3. AMIODAR [Concomitant]
     Dosage: 200 MG, UNK
     Route: 048
  4. LIMPIDEX [Concomitant]
     Dosage: 15 MG, UNK
     Route: 048
  5. COUMADIN [Concomitant]
     Dosage: 5 MG, UNK
     Route: 048
  6. LASIX [Concomitant]
     Dosage: 25 MG, UNK
     Route: 048
  7. KANRENOL [Concomitant]
     Dosage: 200 MG, UNK
     Route: 048

REACTIONS (3)
  - HYPERHIDROSIS [None]
  - HYPOTENSION [None]
  - VISUAL ACUITY REDUCED [None]
